FAERS Safety Report 15300547 (Version 2)
Quarter: 2018Q4

REPORT INFORMATION
  Report Type: Spontaneous
  Country: FR (occurrence: FR)
  Receive Date: 20180821
  Receipt Date: 20181105
  Transmission Date: 20190204
  Serious: Yes (Hospitalization)
  Sender: FDA-Public Use
  Company Number: PHHY2018FR074339

PATIENT
  Age: 72 Year
  Sex: Male
  Weight: 69 kg

DRUGS (4)
  1. METFORMIN [Concomitant]
     Active Substance: METFORMIN HYDROCHLORIDE
     Indication: TYPE 2 DIABETES MELLITUS
     Dosage: 2550 MG, QD
     Route: 048
     Dates: end: 20180614
  2. DOXYCYCLINE. [Suspect]
     Active Substance: DOXYCYCLINE
     Indication: POSTOPERATIVE WOUND INFECTION
     Dosage: 200 MG, QD
     Route: 048
     Dates: end: 20180502
  3. LOXEN L P [Concomitant]
     Active Substance: NICARDIPINE HYDROCHLORIDE
     Indication: PRODUCT USED FOR UNKNOWN INDICATION
     Dosage: UNK
     Route: 065
  4. RIFADINE [Suspect]
     Active Substance: RIFAMPIN
     Indication: POSTOPERATIVE WOUND INFECTION
     Dosage: 900 MG, QD
     Route: 048
     Dates: end: 20180502

REACTIONS (4)
  - Hepatocellular injury [Recovered/Resolved]
  - Drug level increased [Recovered/Resolved]
  - Overdose [Recovered/Resolved]
  - Decreased appetite [Recovered/Resolved]

NARRATIVE: CASE EVENT DATE: 20180319
